FAERS Safety Report 9703613 (Version 1)
Quarter: 2013Q4

REPORT INFORMATION
  Report Type: Spontaneous
  Country: US (occurrence: US)
  Receive Date: 20131122
  Receipt Date: 20131122
  Transmission Date: 20140711
  Serious: No
  Sender: FDA-Public Use
  Company Number: US-PFIZER INC-2013334014

PATIENT
  Age: 56 Year
  Sex: Female
  Weight: 81.18 kg

DRUGS (3)
  1. CARBOPLATIN [Suspect]
     Dosage: UNK
  2. AVASTIN [Suspect]
     Dosage: UNK
  3. ALIMTA [Suspect]
     Dosage: UNK

REACTIONS (2)
  - Hypertension [Unknown]
  - Proteinuria [Unknown]
